FAERS Safety Report 6250627-X (Version None)
Quarter: 2009Q2

REPORT INFORMATION
  Report Type: 
  Country: None (occurrence: None)
  Receive Date: 20090630
  Receipt Date: 20090623
  Transmission Date: 20091009
  Serious: Yes (Death)
  Sender: FDA-Public Use
  Company Number: US-AMGEN-QUU352868

PATIENT

DRUGS (2)
  1. NEUPOGEN [Suspect]
     Indication: CHEMOTHERAPY
     Dates: start: 20090521, end: 20090523
  2. VELCADE [Concomitant]

REACTIONS (1)
  - MULTIPLE MYELOMA [None]
